FAERS Safety Report 9362137 (Version 6)
Quarter: 2013Q3

REPORT INFORMATION
  Report Type: Report from Study
  Country: US (occurrence: US)
  Receive Date: 20130621
  Receipt Date: 20130905
  Transmission Date: 20140515
  Serious: Yes (Life-Threatening, Hospitalization, Other)
  Sender: FDA-Public Use
  Company Number: US-US-EMD SERONO, INC.-7219478

PATIENT
  Age: 64 Year
  Sex: Female

DRUGS (14)
  1. REBIF [Suspect]
     Indication: MULTIPLE SCLEROSIS
     Route: 058
     Dates: start: 20070509
  2. REBIF [Suspect]
     Route: 058
  3. REBIF [Suspect]
     Route: 058
  4. REBIF [Suspect]
     Route: 058
  5. BACLOFEN [Concomitant]
     Indication: MUSCLE SPASMS
  6. AMOXICILLIN [Concomitant]
     Indication: PRODUCT USED FOR UNKNOWN INDICATION
  7. NORTRIPTYLINE [Concomitant]
     Indication: PRODUCT USED FOR UNKNOWN INDICATION
  8. CEFACLOR [Concomitant]
     Indication: PRODUCT USED FOR UNKNOWN INDICATION
  9. ATIVAN [Concomitant]
     Indication: PRODUCT USED FOR UNKNOWN INDICATION
  10. IMURAN                             /00001501/ [Concomitant]
     Indication: PRODUCT USED FOR UNKNOWN INDICATION
  11. BIAXIN [Concomitant]
     Indication: PRODUCT USED FOR UNKNOWN INDICATION
  12. VALIUM                             /00017001/ [Concomitant]
     Indication: PRODUCT USED FOR UNKNOWN INDICATION
  13. SEPTRA [Concomitant]
     Indication: PRODUCT USED FOR UNKNOWN INDICATION
  14. CEPHALEXIN                         /00145501/ [Concomitant]
     Indication: PRODUCT USED FOR UNKNOWN INDICATION

REACTIONS (12)
  - Pancreatitis [Unknown]
  - Cholelithiasis [Recovered/Resolved]
  - Bile duct stone [Unknown]
  - Pulmonary embolism [Unknown]
  - Type 1 diabetes mellitus [Not Recovered/Not Resolved]
  - Postoperative abscess [Unknown]
  - Device related infection [Not Recovered/Not Resolved]
  - Abdominal wound dehiscence [Unknown]
  - Urinary tract infection [Not Recovered/Not Resolved]
  - Eye movement disorder [Recovered/Resolved]
  - Multiple sclerosis relapse [Unknown]
  - Injection site erythema [Recovering/Resolving]
